FAERS Safety Report 23046322 (Version 3)
Quarter: 2023Q4

REPORT INFORMATION
  Report Type: Spontaneous
  Country: US (occurrence: US)
  Receive Date: 20231009
  Receipt Date: 20231107
  Transmission Date: 20240110
  Serious: Yes (Hospitalization, Other)
  Sender: FDA-Public Use
  Company Number: US-002147023-NVSC2023US214205

PATIENT
  Age: 74 Year
  Sex: Male
  Weight: 135.2 kg

DRUGS (5)
  1. PLUVICTO [Suspect]
     Active Substance: LUTETIUM LU-177 VIPIVOTIDE TETRAXETAN
     Indication: Prostate cancer metastatic
     Dosage: 200 MCI (96 WEEKS)
     Route: 042
     Dates: start: 20221230
  2. PLUVICTO [Suspect]
     Active Substance: LUTETIUM LU-177 VIPIVOTIDE TETRAXETAN
     Dosage: 200 MCI (96 WEEKS)
     Route: 042
     Dates: start: 20230328
  3. PLUVICTO [Suspect]
     Active Substance: LUTETIUM LU-177 VIPIVOTIDE TETRAXETAN
     Dosage: 200 MCI (96 WEEKS)
     Route: 042
     Dates: start: 20230522
  4. PLUVICTO [Suspect]
     Active Substance: LUTETIUM LU-177 VIPIVOTIDE TETRAXETAN
     Dosage: 200 MCI (96 WEEKS)
     Route: 042
     Dates: start: 20230712
  5. PLUVICTO [Suspect]
     Active Substance: LUTETIUM LU-177 VIPIVOTIDE TETRAXETAN
     Dosage: 200 MCI (96 WEEKS)
     Route: 042
     Dates: start: 20230824

REACTIONS (4)
  - Urosepsis [Unknown]
  - Nephrolithiasis [Recovered/Resolved with Sequelae]
  - Prostatomegaly [Unknown]
  - Blood creatinine increased [Recovering/Resolving]

NARRATIVE: CASE EVENT DATE: 20230210
